FAERS Safety Report 5988567-3 (Version None)
Quarter: 2008Q4

REPORT INFORMATION
  Report Type: 
  Country: None (occurrence: None)
  Receive Date: 20081210
  Receipt Date: 20080403
  Transmission Date: 20090506
  Serious: No
  Sender: FDA-Public Use
  Company Number: US-BAYER-200811485BCC

PATIENT
  Age: 19 Year
  Sex: Male
  Weight: 59 kg

DRUGS (2)
  1. ALEVE [Suspect]
     Indication: DRUG USE FOR UNKNOWN INDICATION
     Dosage: TOTAL DAILY DOSE: 1760 MG  UNIT DOSE: 220 MG
     Route: 048
     Dates: start: 20080403
  2. MAXIMUM STRENGTH SINUS PAIN PILLS [Concomitant]
     Indication: DRUG USE FOR UNKNOWN INDICATION
     Dosage: TOTAL DAILY DOSE: 3 DF  UNIT DOSE: 3 DF
     Route: 048
     Dates: start: 20080403

REACTIONS (1)
  - ABDOMINAL PAIN UPPER [None]
